FAERS Safety Report 4468335-4 (Version None)
Quarter: 2004Q4

REPORT INFORMATION
  Report Type: 
  Country: None (occurrence: None)
  Receive Date: 20041007
  Receipt Date: 20040927
  Transmission Date: 20050328
  Serious: Yes (Hospitalization)
  Sender: FDA-Public Use
  Company Number: CH-BRISTOL-MYERS SQUIBB COMPANY-12715587

PATIENT
  Sex: Female

DRUGS (2)
  1. ABILIFY [Suspect]
     Indication: SCHIZOPHRENIA
     Dosage: INITIATED AT 15 MG/DAY, INCREASED TO 30 MG/DAY ON 14-JUL-2004.
     Route: 048
     Dates: start: 20040601
  2. ANTIDEPRESSANT [Concomitant]

REACTIONS (1)
  - CHOLECYSTECTOMY [None]
